FAERS Safety Report 5208708-5 (Version None)
Quarter: 2007Q1

REPORT INFORMATION
  Report Type: 
  Country: None (occurrence: None)
  Receive Date: 20070116
  Receipt Date: 20070108
  Transmission Date: 20070707
  Serious: Yes (Other)
  Sender: FDA-Public Use
  Company Number: FR-JNJFOC-20061103853

PATIENT
  Sex: Female

DRUGS (4)
  1. RISPERDAL [Suspect]
     Indication: SCHIZOPHRENIA
     Route: 048
  2. ATARAX [Concomitant]
     Indication: ANXIETY
     Route: 065
  3. ALEPSAL [Concomitant]
     Indication: EPILEPSY
     Route: 065
  4. URBANYL [Concomitant]
     Indication: EPILEPSY
     Route: 065

REACTIONS (4)
  - GAMMA-GLUTAMYLTRANSFERASE INCREASED [None]
  - GRAND MAL CONVULSION [None]
  - PHLEBITIS [None]
  - TRANSAMINASES INCREASED [None]
